FAERS Safety Report 17808828 (Version 1)
Quarter: 2020Q2

REPORT INFORMATION
  Report Type: Spontaneous
  Country: ES (occurrence: ES)
  Receive Date: 20200520
  Receipt Date: 20200520
  Transmission Date: 20200714
  Serious: Yes (Other)
  Sender: FDA-Public Use
  Company Number: ES-SAMSUNG BIOEPIS-SB-2020-17187

PATIENT
  Sex: Female

DRUGS (3)
  1. URSOBILANE [Concomitant]
     Indication: HEPATIC ADENOMA
     Dosage: UNKNOWN
     Route: 065
  2. IMRALDI [Suspect]
     Active Substance: ADALIMUMAB
     Indication: PRODUCT USED FOR UNKNOWN INDICATION
     Dosage: UNKNOWN, END OF NOVEMBER-2019
     Route: 058
     Dates: start: 201911
  3. PENTASA [Concomitant]
     Active Substance: MESALAMINE
     Indication: PRODUCT USED FOR UNKNOWN INDICATION
     Dosage: UNKNOWN
     Route: 065

REACTIONS (11)
  - Renal colic [Unknown]
  - Arthralgia [Not Recovered/Not Resolved]
  - Psoriasis [Unknown]
  - Injection site pain [Unknown]
  - Product quality issue [Unknown]
  - Crohn^s disease [Unknown]
  - Fear of injection [Unknown]
  - Mood swings [Unknown]
  - Myalgia [Not Recovered/Not Resolved]
  - Nervousness [Unknown]
  - Loss of personal independence in daily activities [Unknown]
